FAERS Safety Report 8606510-5 (Version None)
Quarter: 2012Q3

REPORT INFORMATION
  Report Type: 
  Country: None (occurrence: None)
  Receive Date: 20120820
  Receipt Date: 20070707
  Transmission Date: 20120928
  Serious: Yes (Other)
  Sender: FDA-Public Use
  Company Number: CO-PFIZER INC-2012202142

PATIENT
  Sex: Male

DRUGS (5)
  1. NIFEDIPINE [Concomitant]
     Dosage: 30 MG, 2X/DAY
     Route: 048
  2. METOPROLOL TARTRATE [Concomitant]
     Dosage: 100 MG, 2X/DAY
     Route: 048
  3. LIPITOR [Suspect]
     Dosage: 10 MG, 1X/DAY
     Route: 048
  4. ACETYLSALICYLIC ACID [Concomitant]
     Dosage: 100 MG, 1X/DAY
     Route: 048
  5. QUINAPRIL AND HYDROCHLOROTHIAZIDE [Suspect]
     Dosage: QUINAPRIL/HYDROCHLOROTHIAZIDE 20/12.5 MG, 1X/DAY
     Route: 048

REACTIONS (1)
  - CORONARY ARTERY OCCLUSION [None]
